FAERS Safety Report 24445804 (Version 1)
Quarter: 2024Q4

REPORT INFORMATION
  Report Type: Spontaneous
  Country: US (occurrence: US)
  Receive Date: 20241016
  Receipt Date: 20241016
  Transmission Date: 20250115
  Serious: Yes (Other)
  Sender: VIFOR (INTERNATIONAL) INC.
  Company Number: US-Vifor (International) Inc.-VIT-2024-09435

PATIENT
  Age: 56 Year
  Sex: Female
  Weight: 113.5 kg

DRUGS (2)
  1. MIRCERA [Suspect]
     Active Substance: METHOXY POLYETHYLENE GLYCOL-EPOETIN BETA
     Indication: Anaemia
     Dosage: EVERY 2 WEEKS, IVP
     Route: 042
     Dates: start: 20240919, end: 20240919
  2. CALCITRIOL [Concomitant]
     Active Substance: CALCITRIOL
     Dosage: VITAMIN D (CALCITRIOL)
     Dates: start: 20240912

REACTIONS (5)
  - Drug hypersensitivity [Recovered/Resolved]
  - Urticaria [Recovered/Resolved]
  - Flushing [Recovered/Resolved]
  - Dyspnoea [Recovered/Resolved]
  - Blood pressure increased [Recovered/Resolved]

NARRATIVE: CASE EVENT DATE: 20240919
